FAERS Safety Report 15868797 (Version 2)
Quarter: 2019Q1

REPORT INFORMATION
  Report Type: Spontaneous
  Country: US (occurrence: US)
  Receive Date: 20190125
  Receipt Date: 20190219
  Transmission Date: 20190417
  Serious: Yes (Hospitalization)
  Sender: FDA-Public Use
  Company Number: US-CELGENEUS-USA-20190107366

PATIENT
  Age: 67 Year
  Sex: Female

DRUGS (4)
  1. FT-2102 [Suspect]
     Active Substance: OLUTASIDENIB
     Indication: ACUTE MYELOID LEUKAEMIA
     Dosage: 300 MILLIGRAM
     Route: 048
     Dates: start: 20180801
  2. FT-2102 [Suspect]
     Active Substance: OLUTASIDENIB
     Dosage: 150 MILLIGRAM
     Route: 048
     Dates: start: 20181108
  3. VIDAZA [Suspect]
     Active Substance: AZACITIDINE
     Indication: ACUTE MYELOID LEUKAEMIA
     Dosage: 75 MILLIGRAM/SQ. METER
     Route: 041
     Dates: start: 20180801
  4. VIDAZA [Suspect]
     Active Substance: AZACITIDINE
     Dosage: 56 MILLIGRAM/SQ. METER
     Route: 041
     Dates: start: 20181024

REACTIONS (1)
  - Cellulitis [Recovered/Resolved]

NARRATIVE: CASE EVENT DATE: 20181108
